FAERS Safety Report 7089422-0 (Version None)
Quarter: 2010Q4

REPORT INFORMATION
  Report Type: 
  Country: None (occurrence: None)
  Receive Date: 20101108
  Receipt Date: 20101029
  Transmission Date: 20110411
  Serious: Yes (Hospitalization)
  Sender: FDA-Public Use
  Company Number: GXKR2010US12269

PATIENT
  Age: 29 Year
  Sex: Female

DRUGS (2)
  1. VANCOMYCIN [Suspect]
     Indication: CELLULITIS
     Route: 042
  2. WARFARIN [Suspect]
     Indication: DEEP VEIN THROMBOSIS
     Route: 065

REACTIONS (4)
  - DYSPNOEA [None]
  - HYPOXIA [None]
  - PULMONARY ALVEOLAR HAEMORRHAGE [None]
  - RALES [None]
